FAERS Safety Report 18323687 (Version 1)
Quarter: 2020Q3

REPORT INFORMATION
  Report Type: Spontaneous
  Country: US (occurrence: US)
  Receive Date: 20200929
  Receipt Date: 20200929
  Transmission Date: 20201103
  Serious: No
  Sender: FDA-Public Use
  Company Number: US-BTG-201900271

PATIENT
  Sex: Male

DRUGS (1)
  1. VARITHENA [Suspect]
     Active Substance: POLIDOCANOL
     Indication: PERIPHERAL VENOUS DISEASE
     Dosage: INJECTED ONCE TO VARICOSE VEIN OF MID THIGH
     Route: 065
     Dates: start: 20191220

REACTIONS (5)
  - Injection site extravasation [Unknown]
  - Injection site pain [Unknown]
  - Phlebitis superficial [Unknown]
  - Injection site erythema [Unknown]
  - Injection site swelling [Unknown]

NARRATIVE: CASE EVENT DATE: 20191223
